FAERS Safety Report 9875970 (Version 1)
Quarter: 2014Q1

REPORT INFORMATION
  Report Type: Spontaneous
  Country: US (occurrence: None)
  Receive Date: 20140205
  Receipt Date: 20140205
  Transmission Date: 20141002
  Serious: Yes (Other)
  Sender: FDA-Public Use
  Company Number: None

PATIENT
  Age: 60 Year
  Sex: Male
  Weight: 99 kg

DRUGS (4)
  1. ZALTRAP [Suspect]
     Indication: COLON CANCER METASTATIC
     Route: 042
     Dates: start: 20121201, end: 20140131
  2. IRONOTECAN [Concomitant]
  3. FLUORURACILE [Concomitant]
  4. LEUCOVORIN [Concomitant]

REACTIONS (3)
  - Discomfort [None]
  - Tooth abscess [None]
  - Bone loss [None]
